FAERS Safety Report 7425544-X (Version None)
Quarter: 2011Q2

REPORT INFORMATION
  Report Type: 
  Country: None (occurrence: None)
  Receive Date: 20110414
  Receipt Date: 20110401
  Transmission Date: 20111010
  Serious: Yes (Other)
  Sender: FDA-Public Use
  Company Number: CIP10002998

PATIENT
  Age: 84 Year
  Sex: Female
  Weight: 53.5 kg

DRUGS (18)
  1. SYNTHROID [Concomitant]
  2. PREDNISONE [Concomitant]
  3. HYDROXYZINE [Concomitant]
  4. ACTONEL [Suspect]
     Indication: OSTEOPENIA
     Dosage: 35 MG ONCE WEEKLY, ORAL
     Route: 048
     Dates: start: 20041201, end: 20110323
  5. ACTONEL [Suspect]
     Indication: OSTEOPOROSIS
     Dosage: 35 MG ONCE WEEKLY, ORAL
     Route: 048
     Dates: start: 20041201, end: 20110323
  6. MULTIVITAMIN /00097801/ (ASCORBIC ACID, CALCIUM PANTOTHENATE, ERGOCALC [Concomitant]
  7. CEFUROXIME [Concomitant]
  8. CALCIUM CITRATE (CALCIUM CITRATE) [Concomitant]
  9. ERGOCALCIFEROL [Concomitant]
  10. SILVER SULFADIAZINE (SULFADIAZINE SILVER) [Concomitant]
  11. DOXYCYCLINE HYCLATE (DOXYCYCLINE HYCLATE) [Concomitant]
  12. VITAMIN D [Concomitant]
  13. TRIAMCINOLONE [Concomitant]
  14. OMEGA 3	/01334101/ (FISH OIL) [Concomitant]
  15. FLUOCINONIDE [Concomitant]
  16. PREDNISOLONE ACETATE [Concomitant]
  17. LEVOTHYROXINE SODIUM [Concomitant]
  18. OFLOXACIN [Concomitant]

REACTIONS (12)
  - FUNGAL OESOPHAGITIS [None]
  - GASTRIC POLYPS [None]
  - ORAL CANDIDIASIS [None]
  - EXOSTOSIS [None]
  - TOOTH FRACTURE [None]
  - GASTRITIS [None]
  - GASTROOESOPHAGEAL REFLUX DISEASE [None]
  - DIVERTICULUM [None]
  - DRUG INEFFECTIVE [None]
  - BONE DENSITY DECREASED [None]
  - BARRETT'S OESOPHAGUS [None]
  - COUGH [None]
